FAERS Safety Report 16834982 (Version 1)
Quarter: 2019Q3

REPORT INFORMATION
  Report Type: Spontaneous
  Country: GB (occurrence: GB)
  Receive Date: 20190920
  Receipt Date: 20190920
  Transmission Date: 20191005
  Serious: Yes (Other)
  Sender: FDA-Public Use
  Company Number: GB-ELI_LILLY_AND_COMPANY-GB201909004724

PATIENT
  Age: 60 Year
  Sex: Female
  Weight: 77.3 kg

DRUGS (2)
  1. ABASAGLAR [Suspect]
     Active Substance: INSULIN GLARGINE
     Indication: PRODUCT USED FOR UNKNOWN INDICATION
     Dosage: 60 INTERNATIONAL UNIT, UNKNOWN
     Route: 058
     Dates: start: 20190807, end: 20190807
  2. HUMULIN M3 [Concomitant]
     Active Substance: INSULIN HUMAN

REACTIONS (3)
  - Type I hypersensitivity [Recovered/Resolved]
  - Rash [Unknown]
  - Conjunctivitis [Unknown]

NARRATIVE: CASE EVENT DATE: 20190807
